FAERS Safety Report 14677128 (Version 1)
Quarter: 2018Q1

REPORT INFORMATION
  Report Type: Spontaneous
  Country: US (occurrence: US)
  Receive Date: 20180324
  Receipt Date: 20180324
  Transmission Date: 20180509
  Serious: No
  Sender: FDA-Public Use
  Company Number: US-JNJFOC-20180310962

PATIENT
  Sex: Female

DRUGS (1)
  1. TYLENOL EXTRA STRENGTH [Suspect]
     Active Substance: ACETAMINOPHEN
     Indication: PAIN
     Dosage: I TAKE 3/4 AT A TIME AND CAN FINISH THE 24 COUNT BOTTLE IN A LITTLE UNDER 3 DAYS.
     Route: 048

REACTIONS (4)
  - Wrong technique in product usage process [Unknown]
  - Malaise [Unknown]
  - Pain [Unknown]
  - Incorrect dose administered [Unknown]
